FAERS Safety Report 17363377 (Version 1)
Quarter: 2020Q1

REPORT INFORMATION
  Report Type: Spontaneous
  Country: US (occurrence: US)
  Receive Date: 20200203
  Receipt Date: 20200203
  Transmission Date: 20200409
  Serious: No
  Sender: FDA-Public Use
  Company Number: US-AYTU BIOSCIENCES, INC.-2019AYT000029

PATIENT

DRUGS (4)
  1. REQUIP XL [Suspect]
     Active Substance: ROPINIROLE HYDROCHLORIDE
     Indication: PRODUCT USED FOR UNKNOWN INDICATION
     Dosage: 22 MG QAM, 1 MG MID-DAY
  2. STALEVO [Suspect]
     Active Substance: CARBIDOPA\ENTACAPONE\LEVODOPA
     Indication: PRODUCT USED FOR UNKNOWN INDICATION
     Dosage: 50 MG, Q3H
  3. ZOLPIMIST [Suspect]
     Active Substance: ZOLPIDEM TARTRATE
     Indication: PRODUCT USED FOR UNKNOWN INDICATION
     Dosage: 10 MG, QHS
  4. APOKYN [Concomitant]
     Active Substance: APOMORPHINE HYDROCHLORIDE

REACTIONS (3)
  - Face oedema [Unknown]
  - Erythema [Unknown]
  - Rash macular [Unknown]

NARRATIVE: CASE EVENT DATE: 20190115
